FAERS Safety Report 6463129 (Version 3)
Quarter: 2012Q4

REPORT INFORMATION
  Report Type: 
  Country: US (occurrence: US)
  Receive Date: 20071109
  Receipt Date: 20121119
  Transmission Date: 20130627
  Serious: Yes (Death, Hospitalization)
  Sender: FDA-Public Use
  Company Number: US-PFIZER INC-2007092383

PATIENT
  Age: 3 Year
  Sex: Male
  Weight: 11 kg

DRUGS (3)
  1. R-GENE [Suspect]
     Indication: GONADOTROPHIN RELEASING HORMONE STIMULATION TEST
     Dosage: 60 g (a 10 fold overdose)
     Route: 042
     Dates: start: 20071008
  2. R-GENE [Suspect]
     Indication: SHORT STATURE
  3. GLUCAGON [Concomitant]
     Dosage: 0.03 mg/kg
     Route: 042

REACTIONS (2)
  - Accidental overdose [Fatal]
  - Brain oedema [Fatal]
